FAERS Safety Report 24766393 (Version 1)
Quarter: 2024Q4

REPORT INFORMATION
  Report Type: Spontaneous
  Country: IL (occurrence: IL)
  Receive Date: 20241223
  Receipt Date: 20241223
  Transmission Date: 20250114
  Serious: Yes (Hospitalization)
  Sender: SANDOZ
  Company Number: IL-SANDOZ-SDZ2024IL104200

PATIENT
  Age: 10 Year
  Sex: Male

DRUGS (1)
  1. METHOTREXATE [Suspect]
     Active Substance: METHOTREXATE
     Indication: Product used for unknown indication
     Dosage: 15000 MG
     Route: 065
     Dates: start: 20241125

REACTIONS (2)
  - Toxicity to various agents [Unknown]
  - Overdose [Unknown]
